FAERS Safety Report 23967003 (Version 2)
Quarter: 2024Q2

REPORT INFORMATION
  Report Type: Report from Study
  Country: US (occurrence: US)
  Receive Date: 20240612
  Receipt Date: 20240618
  Transmission Date: 20240716
  Serious: Yes (Other)
  Sender: FDA-Public Use
  Company Number: US-MYLANLABS-2024M1052924

PATIENT
  Age: 35 Year
  Sex: Male
  Weight: 70.31 kg

DRUGS (1)
  1. GLATIRAMER ACETATE [Suspect]
     Active Substance: GLATIRAMER ACETATE
     Indication: Product used for unknown indication
     Dosage: 40 MILLIGRAM, 3XW (THREE TIMES PER WEEK)
     Route: 065

REACTIONS (3)
  - Tendon rupture [Unknown]
  - Arthralgia [Unknown]
  - Limb discomfort [Unknown]

NARRATIVE: CASE EVENT DATE: 20231224
